FAERS Safety Report 9912155 (Version 4)
Quarter: 2014Q2

REPORT INFORMATION
  Report Type: Spontaneous
  Country: DE (occurrence: DE)
  Receive Date: 20140220
  Receipt Date: 20140619
  Transmission Date: 20141212
  Serious: Yes (Other)
  Sender: FDA-Public Use
  Company Number: DE-BRISTOL-MYERS SQUIBB COMPANY-20169991

PATIENT
  Sex: Female

DRUGS (1)
  1. LITALIR [Suspect]
     Indication: POLYCYTHAEMIA
     Dosage: TABS

REACTIONS (3)
  - Accident [Recovering/Resolving]
  - Upper limb fracture [Recovering/Resolving]
  - Off label use [Unknown]
